FAERS Safety Report 9549044 (Version 1)
Quarter: 2013Q3

REPORT INFORMATION
  Report Type: Spontaneous
  Country: FR (occurrence: FR)
  Receive Date: 20130924
  Receipt Date: 20130924
  Transmission Date: 20140515
  Serious: Yes (Hospitalization)
  Sender: FDA-Public Use
  Company Number: FR-BAXTER-2013BAX036403

PATIENT
  Age: 63 Year
  Sex: Female

DRUGS (16)
  1. ENDOXAN [Suspect]
     Indication: B-CELL LYMPHOMA
     Route: 042
     Dates: start: 20130613, end: 20130613
  2. ENDOXAN [Suspect]
     Route: 042
     Dates: start: 20130702, end: 20130702
  3. ENDOXAN [Suspect]
     Route: 042
     Dates: start: 20130724, end: 20130724
  4. ENDOXAN [Suspect]
     Route: 042
     Dates: start: 20130819, end: 20130819
  5. MABTHERA [Suspect]
     Indication: B-CELL LYMPHOMA
     Route: 042
     Dates: start: 20130613, end: 20130613
  6. MABTHERA [Suspect]
     Route: 042
     Dates: start: 20130702, end: 20130702
  7. MABTHERA [Suspect]
     Route: 042
     Dates: start: 20130724, end: 20130724
  8. MABTHERA [Suspect]
     Route: 042
     Dates: start: 20130819, end: 20130819
  9. DOXORUBICIN CHLOROHYDRATE [Suspect]
     Indication: B-CELL LYMPHOMA
     Route: 042
     Dates: start: 20130613, end: 20130613
  10. DOXORUBICIN CHLOROHYDRATE [Suspect]
     Route: 042
     Dates: start: 20130702, end: 20130702
  11. DOXORUBICIN CHLOROHYDRATE [Suspect]
     Route: 042
     Dates: start: 20130724, end: 20130724
  12. DOXORUBICIN CHLOROHYDRATE [Suspect]
     Route: 042
     Dates: start: 20130819, end: 20130819
  13. ONCOVIN [Suspect]
     Indication: B-CELL LYMPHOMA
     Route: 042
     Dates: start: 20130613, end: 20130613
  14. ONCOVIN [Suspect]
     Route: 042
     Dates: start: 20130702, end: 20130702
  15. ONCOVIN [Suspect]
     Route: 042
     Dates: start: 20130724, end: 20130724
  16. ONCOVIN [Suspect]
     Route: 042
     Dates: start: 20130819, end: 20130819

REACTIONS (2)
  - Hepatitis B [Not Recovered/Not Resolved]
  - Febrile neutropenia [Not Recovered/Not Resolved]
